FAERS Safety Report 21193261 (Version 1)
Quarter: 2022Q3

REPORT INFORMATION
  Report Type: Spontaneous
  Country: DK (occurrence: DK)
  Receive Date: 20220810
  Receipt Date: 20220810
  Transmission Date: 20221027
  Serious: Yes (Other)
  Sender: FDA-Public Use
  Company Number: None

PATIENT
  Age: 42 Year
  Sex: Female
  Weight: 92 kg

DRUGS (1)
  1. AJOVY [Suspect]
     Active Substance: FREMANEZUMAB-VFRM
     Indication: Migraine
     Dates: start: 202106

REACTIONS (3)
  - Polyuria [Not Recovered/Not Resolved]
  - Urinary retention [Not Recovered/Not Resolved]
  - Aphthous ulcer [Not Recovered/Not Resolved]

NARRATIVE: CASE EVENT DATE: 20210601
